FAERS Safety Report 7361005-4 (Version None)
Quarter: 2011Q1

REPORT INFORMATION
  Report Type: 
  Country: None (occurrence: None)
  Receive Date: 20110318
  Receipt Date: 20110309
  Transmission Date: 20110831
  Serious: Yes (Hospitalization)
  Sender: FDA-Public Use
  Company Number: US-AMGEN-USASP2011012123

PATIENT
  Age: 79 Year
  Sex: Female

DRUGS (1)
  1. ENBREL [Suspect]
     Indication: RHEUMATOID ARTHRITIS
     Dosage: 50 MG, QWK
     Dates: start: 20060101

REACTIONS (12)
  - BLOOD CALCIUM INCREASED [None]
  - RENAL FAILURE [None]
  - DEHYDRATION [None]
  - HAEMOGLOBIN DECREASED [None]
  - CARDIAC FAILURE CONGESTIVE [None]
  - PYREXIA [None]
  - INJECTION SITE PRURITUS [None]
  - RHEUMATOID ARTHRITIS [None]
  - WEIGHT DECREASED [None]
  - INJECTION SITE PAIN [None]
  - INJECTION SITE REACTION [None]
  - INJECTION SITE ERYTHEMA [None]
